FAERS Safety Report 16277949 (Version 1)
Quarter: 2019Q2

REPORT INFORMATION
  Report Type: Other
  Country: CA (occurrence: CA)
  Receive Date: 20190506
  Receipt Date: 20190506
  Transmission Date: 20190711
  Serious: Yes (Other)
  Sender: FDA-Public Use
  Company Number: CA-PFIZER INC-2019189362

PATIENT
  Sex: Female

DRUGS (2)
  1. CALCIUM CARBONATE. [Suspect]
     Active Substance: CALCIUM CARBONATE
     Dosage: UNK
     Route: 065
  2. LABETALOL HYDROCHLORIDE. [Suspect]
     Active Substance: LABETALOL HYDROCHLORIDE
     Indication: HYPERTENSION
     Dosage: 300 MG, 3X/DAY
     Route: 065

REACTIONS (8)
  - Toxicity to various agents [Unknown]
  - Hypercalcaemia [Unknown]
  - Milk-alkali syndrome [Unknown]
  - Metabolic alkalosis [Unknown]
  - Live birth [Unknown]
  - Hypophosphataemia [Unknown]
  - Acute kidney injury [Unknown]
  - Anaemia [Unknown]
